FAERS Safety Report 19930397 (Version 3)
Quarter: 2022Q1

REPORT INFORMATION
  Report Type: Report from Study
  Country: US (occurrence: US)
  Receive Date: 20211008
  Receipt Date: 20220127
  Transmission Date: 20220423
  Serious: Yes (Other)
  Sender: FDA-Public Use
  Company Number: US-ABBVIE-21K-163-4071003-00

PATIENT
  Sex: Male
  Weight: 63.560 kg

DRUGS (6)
  1. HUMIRA [Suspect]
     Active Substance: ADALIMUMAB
     Indication: Crohn^s disease
     Dosage: CITRATE FREE
     Route: 058
  2. HUMIRA [Suspect]
     Active Substance: ADALIMUMAB
     Dosage: CITRATE FREE
     Route: 058
  3. HUMIRA [Suspect]
     Active Substance: ADALIMUMAB
     Dosage: CITRATE FREE
     Route: 058
  4. MODERNA COVID-19 VACCINE [Concomitant]
     Active Substance: ELASOMERAN
     Indication: COVID-19 immunisation
     Dosage: MODERNA?FIRST DOSE
     Route: 030
     Dates: start: 20210107, end: 20210107
  5. MODERNA COVID-19 VACCINE [Concomitant]
     Active Substance: ELASOMERAN
     Dosage: MODERNA?SECOND DOSE
     Route: 030
     Dates: start: 20210207, end: 20210207
  6. EPIPEN [Concomitant]
     Active Substance: EPINEPHRINE
     Indication: Crohn^s disease

REACTIONS (2)
  - Benign lung neoplasm [Recovered/Resolved]
  - Malignant melanoma [Recovering/Resolving]
